FAERS Safety Report 19195204 (Version 1)
Quarter: 2021Q2

REPORT INFORMATION
  Report Type: Spontaneous
  Country: US (occurrence: US)
  Receive Date: 20210429
  Receipt Date: 20210429
  Transmission Date: 20210717
  Serious: Yes (Life-Threatening, Hospitalization)
  Sender: FDA-Public Use
  Company Number: None

PATIENT
  Age: 61 Year
  Sex: Female
  Weight: 121.7 kg

DRUGS (2)
  1. ISOVUE [Suspect]
     Active Substance: IOPAMIDOL
     Indication: ABDOMINAL PAIN
     Dosage: ?          OTHER FREQUENCY:ONCE;?
     Route: 042
     Dates: start: 20210424, end: 20210424
  2. ISOVUE [Suspect]
     Active Substance: IOPAMIDOL
     Indication: COMPUTERISED TOMOGRAM ABDOMEN
     Dosage: ?          OTHER FREQUENCY:ONCE;?
     Route: 042
     Dates: start: 20210424, end: 20210424

REACTIONS (8)
  - Pulse absent [None]
  - Oxygen saturation increased [None]
  - Seizure [None]
  - Feeling hot [None]
  - Nausea [None]
  - Erythema [None]
  - Pruritus [None]
  - Cardio-respiratory arrest [None]

NARRATIVE: CASE EVENT DATE: 20210424
